FAERS Safety Report 13646798 (Version 1)
Quarter: 2017Q2

REPORT INFORMATION
  Report Type: Spontaneous
  Country: US (occurrence: US)
  Receive Date: 20170613
  Receipt Date: 20170613
  Transmission Date: 20170830
  Serious: Yes (Life-Threatening, Hospitalization, Disabling, Other)
  Sender: FDA-Public Use
  Company Number: None

PATIENT
  Age: 52 Year
  Sex: Male
  Weight: 66.74 kg

DRUGS (16)
  1. CLONAZEPAM. [Concomitant]
     Active Substance: CLONAZEPAM
  2. HYOSCYAMINE SULFATTE 0.125MG [Suspect]
     Active Substance: HYOSCYAMINE SULFATE
     Indication: HAEMATEMESIS
     Route: 048
  3. HYOSCYAMINE SULFATTE 0.125MG [Suspect]
     Active Substance: HYOSCYAMINE SULFATE
     Indication: X-RAY WITH CONTRAST LOWER GASTROINTESTINAL TRACT
     Route: 048
  4. INVAGA [Concomitant]
  5. BREO ELLIPTA [Concomitant]
     Active Substance: FLUTICASONE FUROATE\VILANTEROL TRIFENATATE
  6. VENTOLIN HFA [Concomitant]
     Active Substance: ALBUTEROL SULFATE
  7. HYOSCYAMINE SULFATTE 0.125MG [Suspect]
     Active Substance: HYOSCYAMINE SULFATE
     Indication: X-RAY WITH CONTRAST UPPER GASTROINTESTINAL TRACT
     Route: 048
  8. FERROUS SULFATE. [Concomitant]
     Active Substance: FERROUS SULFATE
  9. AREURONTIN [Concomitant]
  10. ATORVASTATIN [Concomitant]
     Active Substance: ATORVASTATIN
  11. LANSOPRAZOLE. [Concomitant]
     Active Substance: LANSOPRAZOLE
  12. MECIZINE [Concomitant]
  13. B-50 [Concomitant]
  14. HYOSCYAMINE SULFATTE 0.125MG [Suspect]
     Active Substance: HYOSCYAMINE SULFATE
     Indication: DIARRHOEA
     Route: 048
  15. HYOSCYAMINE SULFATTE 0.125MG [Suspect]
     Active Substance: HYOSCYAMINE SULFATE
     Indication: GASTROINTESTINAL DISORDER
     Route: 048
  16. ZANTAC [Concomitant]
     Active Substance: RANITIDINE HYDROCHLORIDE

REACTIONS (18)
  - Anxiety [None]
  - Dizziness [None]
  - Feeling drunk [None]
  - Visual impairment [None]
  - Headache [None]
  - Product measured potency issue [None]
  - Gait disturbance [None]
  - Nausea [None]
  - Confusional state [None]
  - Abdominal pain [None]
  - Legal problem [None]
  - Amnesia [None]
  - Personality change [None]
  - Executive dysfunction [None]
  - Dysarthria [None]
  - Speech disorder [None]
  - Malaise [None]
  - Incontinence [None]

NARRATIVE: CASE EVENT DATE: 20160819
